FAERS Safety Report 11070607 (Version 1)
Quarter: 2015Q2

REPORT INFORMATION
  Report Type: Spontaneous
  Country: SE (occurrence: SE)
  Receive Date: 20150427
  Receipt Date: 20150427
  Transmission Date: 20150821
  Serious: Yes (Other)
  Sender: FDA-Public Use
  Company Number: SE-TEVA-557345ISR

PATIENT
  Age: 64 Year
  Sex: Male

DRUGS (1)
  1. LOSARTAN [Suspect]
     Active Substance: LOSARTAN
     Route: 048

REACTIONS (3)
  - Arthralgia [Recovering/Resolving]
  - Arthritis reactive [Recovering/Resolving]
  - Joint swelling [Recovering/Resolving]
